FAERS Safety Report 12788163 (Version 1)
Quarter: 2016Q3

REPORT INFORMATION
  Report Type: Spontaneous
  Country: US (occurrence: US)
  Receive Date: 20160928
  Receipt Date: 20160928
  Transmission Date: 20161109
  Serious: Yes (Other)
  Sender: FDA-Public Use
  Company Number: PHEH2016US024038

PATIENT
  Age: 38 Year
  Sex: Female
  Weight: 61.23 kg

DRUGS (3)
  1. CALTRATE WITH VITAMIN D [Concomitant]
     Active Substance: CALCIUM CARBONATE\CHOLECALCIFEROL
     Indication: PRODUCT USED FOR UNKNOWN INDICATION
     Dosage: 1 DF, BID
     Route: 048
  2. FEMARA [Suspect]
     Active Substance: LETROZOLE
     Indication: BREAST CANCER METASTATIC
     Dosage: 2.5 MG, QD (EVERY BEDTIME)
     Route: 048
     Dates: start: 201601
  3. SYNTHROID [Concomitant]
     Active Substance: LEVOTHYROXINE SODIUM
     Indication: PRODUCT USED FOR UNKNOWN INDICATION
     Dosage: 50 UG, QD (EVERY MORNING ON AN EMPTY STOMACH)
     Route: 048

REACTIONS (24)
  - Mass [Unknown]
  - Cholelithiasis [Unknown]
  - Pneumonitis [Unknown]
  - Pleural fibrosis [Unknown]
  - Osteoarthritis [Unknown]
  - Malignant neoplasm progression [Unknown]
  - Metastases to bone [Unknown]
  - Spinal osteoarthritis [Unknown]
  - Dizziness [Recovering/Resolving]
  - Breast cancer metastatic [Unknown]
  - Musculoskeletal chest pain [Unknown]
  - Abdominal tenderness [Unknown]
  - Scar [Unknown]
  - Nodule [Unknown]
  - Anxiety [Unknown]
  - Fatigue [Unknown]
  - Breast cancer recurrent [Unknown]
  - Bone lesion [Unknown]
  - Procedural pain [Unknown]
  - Soft tissue mass [Unknown]
  - Gallbladder enlargement [Unknown]
  - Abdominal pain upper [Unknown]
  - Headache [Recovered/Resolved]
  - Malaise [Unknown]

NARRATIVE: CASE EVENT DATE: 201607
